FAERS Safety Report 7076508-X (Version None)
Quarter: 2010Q4

REPORT INFORMATION
  Report Type: 
  Country: None (occurrence: None)
  Receive Date: 20101101
  Receipt Date: 20101019
  Transmission Date: 20110411
  Serious: Yes (Other)
  Sender: FDA-Public Use
  Company Number: US-ELI_LILLY_AND_COMPANY-US201010004883

PATIENT
  Sex: Female

DRUGS (1)
  1. HUMATROPE [Suspect]
     Indication: FIBROMYALGIA
     Dosage: 4 MG, UNKNOWN
     Route: 065
     Dates: start: 19990101

REACTIONS (3)
  - ARTHRITIS [None]
  - FALL [None]
  - INTERVERTEBRAL DISC PROTRUSION [None]
